FAERS Safety Report 5028223-1 (Version None)
Quarter: 2006Q2

REPORT INFORMATION
  Report Type: 
  Country: None (occurrence: None)
  Receive Date: 20060609
  Receipt Date: 20060530
  Transmission Date: 20061013
  Serious: Yes (Hospitalization)
  Sender: FDA-Public Use
  Company Number: 2006SP002300

PATIENT
  Age: 79 Year
  Sex: Male

DRUGS (7)
  1. XOPENEX [Suspect]
     Dosage: INHALATION
     Route: 055
     Dates: start: 20060401
  2. CAMPATH [Suspect]
     Indication: T-CELL PROLYMPHOCYTIC LEUKAEMIA
     Dosage: SUBCUTANEOUS
     Route: 058
     Dates: start: 20060101, end: 20060401
  3. WARFARIN SODIUM [Concomitant]
  4. GLYBURIDE [Concomitant]
  5. BACTRIM [Concomitant]
  6. LASIX [Concomitant]
  7. LABETALOL [Concomitant]

REACTIONS (7)
  - ASTHENIA [None]
  - BLOOD GLUCOSE DECREASED [None]
  - BODY TEMPERATURE INCREASED [None]
  - COMA [None]
  - DRUG INTERACTION [None]
  - FATIGUE [None]
  - GAIT DISTURBANCE [None]
